FAERS Safety Report 7731694-0 (Version None)
Quarter: 2011Q3

REPORT INFORMATION
  Report Type: 
  Country: None (occurrence: None)
  Receive Date: 20110906
  Receipt Date: 20110627
  Transmission Date: 20111222
  Serious: No
  Sender: FDA-Public Use
  Company Number: US-AMGEN-USASP2011032852

PATIENT
  Age: 70 Year
  Sex: Female

DRUGS (1)
  1. PROLIA [Suspect]
     Indication: OSTEOPOROSIS POSTMENOPAUSAL
     Dosage: 60 MG, Q6MO
     Dates: start: 20110126

REACTIONS (3)
  - BLOOD CHOLESTEROL INCREASED [None]
  - CYSTITIS [None]
  - GASTROOESOPHAGEAL REFLUX DISEASE [None]
